FAERS Safety Report 25454314 (Version 2)
Quarter: 2025Q2

REPORT INFORMATION
  Report Type: Report from Study
  Country: US (occurrence: US)
  Receive Date: 20250619
  Receipt Date: 20250625
  Transmission Date: 20250717
  Serious: No
  Sender: ACADIA PHARMACEUTICALS
  Company Number: US-ACADIA PHARMACEUTICALS INC.-ACA-2025-PIM-007163

PATIENT
  Age: 79 Year
  Sex: Male

DRUGS (2)
  1. NUPLAZID [Suspect]
     Active Substance: PIMAVANSERIN TARTRATE
     Indication: Parkinson^s disease psychosis
     Dosage: 34 MILLIGRAM, QD
     Route: 048
     Dates: start: 20250407, end: 20250602
  2. SINEMET [Concomitant]
     Active Substance: CARBIDOPA\LEVODOPA

REACTIONS (2)
  - Product distribution issue [Not Recovered/Not Resolved]
  - Product use issue [Not Recovered/Not Resolved]

NARRATIVE: CASE EVENT DATE: 20250602
